FAERS Safety Report 19084344 (Version 1)
Quarter: 2021Q2

REPORT INFORMATION
  Report Type: Spontaneous
  Country: US (occurrence: US)
  Receive Date: 20210401
  Receipt Date: 20210401
  Transmission Date: 20210717
  Serious: No
  Sender: FDA-Public Use
  Company Number: US-BRISTOL-MYERS SQUIBB COMPANY-BMS-2021-032210

PATIENT
  Age: 13 Year
  Sex: Male

DRUGS (2)
  1. SPRYCEL [Suspect]
     Active Substance: DASATINIB
     Indication: NEOPLASM MALIGNANT
     Dosage: 50 MILLIGRAM, QD
     Route: 048
     Dates: start: 20210313
  2. SPRYCEL [Suspect]
     Active Substance: DASATINIB
     Indication: BRAIN NEOPLASM

REACTIONS (3)
  - Loss of personal independence in daily activities [Unknown]
  - Intentional product use issue [Unknown]
  - Fatigue [Recovering/Resolving]
